FAERS Safety Report 15404323 (Version 1)
Quarter: 2018Q3

REPORT INFORMATION
  Report Type: Report from Study
  Country: US (occurrence: US)
  Receive Date: 20180919
  Receipt Date: 20180919
  Transmission Date: 20181010
  Serious: Yes (Hospitalization, Other)
  Sender: FDA-Public Use
  Company Number: US-MYLANLABS-2018M1068423

PATIENT
  Age: 53 Year
  Sex: Female

DRUGS (3)
  1. PREDNISONE. [Suspect]
     Active Substance: PREDNISONE
     Indication: PNEUMONIA
     Dosage: UNK
  2. CABOMETYX [Suspect]
     Active Substance: CABOZANTINIB S-MALATE
     Dosage: 60 MG, QOD
     Dates: start: 20180720
  3. CABOMETYX [Suspect]
     Active Substance: CABOZANTINIB S-MALATE
     Indication: RENAL CANCER
     Dosage: 60 MG, UNK (AT 10 AM WITHOUT FOOD)
     Route: 065
     Dates: start: 20180618, end: 20180709

REACTIONS (12)
  - Pneumonitis [Recovering/Resolving]
  - Nausea [Unknown]
  - Blood pressure increased [Unknown]
  - Diarrhoea [Unknown]
  - Candida infection [Recovering/Resolving]
  - Flatulence [Unknown]
  - Dysphonia [Recovering/Resolving]
  - Constipation [Recovered/Resolved]
  - Glossitis [Not Recovered/Not Resolved]
  - Fatigue [Not Recovered/Not Resolved]
  - Palmar-plantar erythrodysaesthesia syndrome [Recovering/Resolving]
  - Arthralgia [Recovered/Resolved]

NARRATIVE: CASE EVENT DATE: 2018
